FAERS Safety Report 7076052-X (Version None)
Quarter: 2010Q4

REPORT INFORMATION
  Report Type: 
  Country: None (occurrence: None)
  Receive Date: 20101101
  Receipt Date: 20101020
  Transmission Date: 20110411
  Serious: Yes (Other)
  Sender: FDA-Public Use
  Company Number: US-BIOGENIDEC-2010BI036727

PATIENT
  Age: 26 Year
  Sex: Female

DRUGS (3)
  1. AVONEX [Suspect]
     Indication: MULTIPLE SCLEROSIS
     Route: 030
     Dates: start: 20010919, end: 20030624
  2. AVONEX [Suspect]
     Route: 030
     Dates: start: 20051216, end: 20070606
  3. AVONEX [Suspect]
     Route: 030
     Dates: start: 20080610, end: 20081226

REACTIONS (1)
  - SUICIDE ATTEMPT [None]
